FAERS Safety Report 25805475 (Version 2)
Quarter: 2025Q4

REPORT INFORMATION
  Report Type: Spontaneous
  Country: US (occurrence: US)
  Receive Date: 20250916
  Receipt Date: 20251017
  Transmission Date: 20260117
  Serious: No
  Sender: ADAMAS PHARMA
  Company Number: US-002147023-ADM202410-003942

PATIENT
  Age: 76 Year
  Sex: Female

DRUGS (16)
  1. GOCOVRI [Suspect]
     Active Substance: AMANTADINE
     Indication: Parkinson^s disease
     Route: 048
     Dates: start: 20240912, end: 20241010
  2. BETAMETHASONE [Concomitant]
     Active Substance: BETAMETHASONE
     Dosage: 0.05% CREAM 15GM
  3. BUPROPION [Concomitant]
     Active Substance: BUPROPION
  4. CALCIUM [Concomitant]
     Active Substance: CALCIUM
  5. CARBIDOPA\LEVODOPA [Concomitant]
     Active Substance: CARBIDOPA\LEVODOPA
     Dosage: EACH DF CONTAIN OF 25-100MG
  6. DEXAMETHASONE [Concomitant]
     Active Substance: DEXAMETHASONE
     Dosage: 0.5MG/5ML
  7. ESCITALOPRAM [Concomitant]
     Active Substance: ESCITALOPRAM OXALATE
  8. GABAPENTIN [Concomitant]
     Active Substance: GABAPENTIN
  9. Glucosam/chond [Concomitant]
     Dosage: 750-600 TABS 120^S
  10. Glucosam/chond [Concomitant]
     Dosage: COMPLEX TABS 120
  11. LEVOTHYROXINE [Concomitant]
     Active Substance: LEVOTHYROXINE
     Dosage: 13MCG (0.013MG)
  12. VITAMINS [Concomitant]
     Active Substance: VITAMINS
  13. TRIAMCINOLONE ACETONIDE [Concomitant]
     Active Substance: TRIAMCINOLONE ACETONIDE
     Dosage: NOT PROVIDED
  14. HYDROCHLOROTHIAZIDE [Concomitant]
     Active Substance: HYDROCHLOROTHIAZIDE
  15. VITAMIN D [Concomitant]
     Active Substance: VITAMIN D NOS
     Dosage: 1000 UNIT
  16. Triamtehene [Concomitant]
     Dosage: 37.5 MG

REACTIONS (1)
  - Peripheral swelling [Not Recovered/Not Resolved]

NARRATIVE: CASE EVENT DATE: 20240919
